FAERS Safety Report 15261987 (Version 1)
Quarter: 2018Q3

REPORT INFORMATION
  Report Type: Spontaneous
  Country: DE (occurrence: DE)
  Receive Date: 20180809
  Receipt Date: 20180809
  Transmission Date: 20181010
  Serious: Yes (Hospitalization)
  Sender: FDA-Public Use
  Company Number: DE-PFIZER INC-2018316280

PATIENT
  Age: 72 Year
  Sex: Female

DRUGS (4)
  1. ZOSTEX [Interacting]
     Active Substance: BRIVUDINE
     Indication: HERPES ZOSTER
     Route: 048
     Dates: start: 20180613, end: 20180619
  2. PREDNISOLONE. [Concomitant]
     Active Substance: PREDNISOLONE
  3. METHOTREXATE SODIUM. [Suspect]
     Active Substance: METHOTREXATE SODIUM
     Indication: ARTHRITIS
  4. TRAMADOL. [Concomitant]
     Active Substance: TRAMADOL

REACTIONS (5)
  - Dehydration [Recovering/Resolving]
  - Pyrexia [Recovering/Resolving]
  - Transaminases increased [Recovering/Resolving]
  - Labelled drug-drug interaction medication error [Recovered/Resolved]
  - C-reactive protein increased [Recovering/Resolving]

NARRATIVE: CASE EVENT DATE: 20180613
